FAERS Safety Report 14122596 (Version 1)
Quarter: 2017Q4

REPORT INFORMATION
  Report Type: Spontaneous
  Country: FR (occurrence: FR)
  Receive Date: 20171024
  Receipt Date: 20171024
  Transmission Date: 20180321
  Serious: Yes (Death, Other)
  Sender: FDA-Public Use
  Company Number: FR-GILEAD-2017-0299945

PATIENT
  Sex: Female
  Weight: .61 kg

DRUGS (4)
  1. MIFEGYNE [Concomitant]
     Active Substance: MIFEPRISTONE
     Dosage: 3 DF, UNK
     Route: 064
     Dates: start: 20171003
  2. CYTOTEC [Concomitant]
     Active Substance: MISOPROSTOL
     Dosage: UNK
     Route: 064
  3. ATRIPLA [Suspect]
     Active Substance: EFAVIRENZ\EMTRICITABINE\TENOFOVIR DISOPROXIL FUMARATE
     Indication: HIV INFECTION
     Dosage: UNK
     Route: 050
  4. LAMINARIA [Concomitant]
     Dosage: UNK
     Route: 064
     Dates: start: 20171004

REACTIONS (6)
  - Ventricular septal defect [Fatal]
  - Paternal exposure timing unspecified [Fatal]
  - Dysmorphism [Fatal]
  - Foetal malformation [Fatal]
  - Limb reduction defect [Fatal]
  - Limb hypoplasia congenital [Fatal]

NARRATIVE: CASE EVENT DATE: 20170515
